FAERS Safety Report 22240391 (Version 1)
Quarter: 2023Q2

REPORT INFORMATION
  Report Type: Spontaneous
  Country: US (occurrence: US)
  Receive Date: 20230421
  Receipt Date: 20230421
  Transmission Date: 20230721
  Serious: No
  Sender: FDA-Public Use
  Company Number: US-ALLERGAN-2208407US

PATIENT
  Sex: Female

DRUGS (9)
  1. RESTASIS [Suspect]
     Active Substance: CYCLOSPORINE
     Indication: Dry eye
     Dosage: 2 GTT, BID
     Route: 047
  2. TOCOPHEROL [Concomitant]
     Active Substance: TOCOPHEROL
     Indication: Dry eye
  3. BETA CAROTENE [Concomitant]
     Active Substance: BETA CAROTENE
     Indication: Dry eye
  4. Optase Dry eyes intense [Concomitant]
     Indication: Dry eye
  5. ATORVASTATIN [Concomitant]
     Active Substance: ATORVASTATIN
     Indication: Blood cholesterol increased
     Dosage: 10 MG, QD
  6. MODERNA COVID-19 VACCINE [Concomitant]
     Active Substance: ELASOMERAN
     Indication: COVID-19 immunisation
     Dosage: UNK UNK, SINGLE
     Dates: start: 20220404, end: 20220404
  7. MODERNA COVID-19 VACCINE [Concomitant]
     Active Substance: ELASOMERAN
     Dosage: UNK UNK, SINGLE
     Route: 030
     Dates: start: 20211115, end: 20211115
  8. MODERNA COVID-19 VACCINE [Concomitant]
     Active Substance: ELASOMERAN
     Dosage: UNK UNK, SINGLE
     Route: 030
     Dates: start: 20210330, end: 20210330
  9. MODERNA COVID-19 VACCINE [Concomitant]
     Active Substance: ELASOMERAN
     Dosage: UNK UNK, SINGLE
     Route: 030
     Dates: start: 20210302, end: 20210302

REACTIONS (3)
  - Eye irritation [Recovering/Resolving]
  - Therapeutic response delayed [Unknown]
  - Product quality issue [Unknown]

NARRATIVE: CASE EVENT DATE: 20220101
